FAERS Safety Report 21231640 (Version 1)
Quarter: 2022Q3

REPORT INFORMATION
  Report Type: Spontaneous
  Country: US (occurrence: US)
  Receive Date: 20220819
  Receipt Date: 20220819
  Transmission Date: 20221027
  Serious: No
  Sender: FDA-Public Use
  Company Number: US-ALLERGAN-2216652US

PATIENT
  Age: 93 Year
  Sex: Female

DRUGS (2)
  1. LASTACAFT [Suspect]
     Active Substance: ALCAFTADINE
     Indication: Eye pruritus
     Dosage: ACTUAL:1GTT IN EACH EYE IN THE MORNING
     Dates: start: 20220516
  2. LASTACAFT [Suspect]
     Active Substance: ALCAFTADINE
     Indication: Eye allergy

REACTIONS (1)
  - Somnolence [Not Recovered/Not Resolved]
